FAERS Safety Report 12279821 (Version 12)
Quarter: 2017Q3

REPORT INFORMATION
  Report Type: Spontaneous
  Country: US (occurrence: US)
  Receive Date: 20160418
  Receipt Date: 20170804
  Transmission Date: 20171127
  Serious: Yes (Death, Hospitalization)
  Sender: FDA-Public Use
  Company Number: US-ACTELION-A-NJ2016-134555

PATIENT
  Age: 71 Year
  Sex: Male

DRUGS (3)
  1. REMODULIN [Concomitant]
     Active Substance: TREPROSTINIL
  2. OPSUMIT [Suspect]
     Active Substance: MACITENTAN
     Indication: PULMONARY ARTERIAL HYPERTENSION
     Dosage: 10 MG, QD
     Route: 048
     Dates: start: 20150520
  3. ADCIRCA [Concomitant]
     Active Substance: TADALAFIL

REACTIONS (9)
  - Dyspnoea [Unknown]
  - Pulmonary arterial hypertension [Fatal]
  - Peripheral swelling [Unknown]
  - Abdominal distension [Unknown]
  - Hypoxia [Unknown]
  - Hypotension [Unknown]
  - Loss of personal independence in daily activities [Unknown]
  - Central venous catheterisation [Unknown]
  - Thrombosis in device [Unknown]

NARRATIVE: CASE EVENT DATE: 20160705
